FAERS Safety Report 9698643 (Version 2)
Quarter: 2013Q4

REPORT INFORMATION
  Report Type: Spontaneous
  Country: JP (occurrence: JP)
  Receive Date: 20131120
  Receipt Date: 20131210
  Transmission Date: 20140711
  Serious: Yes (Other)
  Sender: FDA-Public Use
  Company Number: JP-BRISTOL-MYERS SQUIBB COMPANY-19818376

PATIENT
  Age: 70 Year
  Sex: Male

DRUGS (10)
  1. METGLUCO [Suspect]
     Indication: DIABETES MELLITUS MANAGEMENT
     Route: 048
     Dates: start: 20120423, end: 20120723
  2. AMARYL [Concomitant]
     Indication: DIABETES MELLITUS MANAGEMENT
     Route: 048
     Dates: start: 20090508
  3. MEDET [Concomitant]
     Indication: DIABETES MELLITUS MANAGEMENT
     Route: 048
     Dates: start: 20090612, end: 20120423
  4. VALSARTAN + AMLODIPINE [Concomitant]
     Indication: BLOOD PRESSURE MANAGEMENT
     Route: 048
     Dates: start: 20101210, end: 20120723
  5. JANUVIA [Concomitant]
     Indication: DIABETES MELLITUS MANAGEMENT
     Route: 048
     Dates: start: 20110311, end: 20120723
  6. HARNAL [Concomitant]
     Indication: BENIGN PROSTATIC HYPERPLASIA
     Route: 048
     Dates: start: 20111216, end: 20120723
  7. LOXONIN [Concomitant]
     Indication: ANALGESIC THERAPY
     Route: 048
     Dates: start: 20120224, end: 20120528
  8. MUCOSTA [Concomitant]
     Indication: PROPHYLAXIS AGAINST GASTROINTESTINAL ULCER
     Route: 048
     Dates: start: 20120224, end: 20120528
  9. METHYCOBAL [Concomitant]
     Indication: NEURALGIA
     Route: 048
     Dates: start: 20120310, end: 20120528
  10. LYRICA [Concomitant]
     Indication: NEURALGIA
     Route: 048
     Dates: start: 20120310, end: 20120528

REACTIONS (1)
  - Rash [Recovered/Resolved]
